FAERS Safety Report 9153929 (Version 1)
Quarter: 2013Q1

REPORT INFORMATION
  Report Type: Spontaneous
  Country: US (occurrence: None)
  Receive Date: 20130206
  Receipt Date: 20130206
  Transmission Date: 20140127
  Serious: Yes (Hospitalization)
  Sender: FDA-Public Use
  Company Number: MTX-11-056

PATIENT
  Age: 67 Year
  Sex: Female

DRUGS (6)
  1. METHOTREXATE [Suspect]
     Indication: RHEUMATOID ARTHRITIS
  2. ABATACEPT [Concomitant]
  3. PREDNISOLONE [Concomitant]
  4. INDOMETHACIN [Concomitant]
  5. FOLIAMIN [Concomitant]
  6. MUCOSTA [Concomitant]

REACTIONS (1)
  - Herpes zoster [None]
